FAERS Safety Report 6865333-8 (Version None)
Quarter: 2010Q3

REPORT INFORMATION
  Report Type: 
  Country: None (occurrence: None)
  Receive Date: 20100720
  Receipt Date: 20100709
  Transmission Date: 20110219
  Serious: Yes (Death, Hospitalization, Disabling)
  Sender: FDA-Public Use
  Company Number: OSCN-NO-0902S-0123

PATIENT
  Age: 66 Year
  Sex: Male
  Weight: 51.4 kg

DRUGS (6)
  1. OMNISCAN [Suspect]
     Indication: RENAL TRANSPLANT
     Dosage: 10.3 ML, I.E. 0.1 MMOL/KG, SINGLE DOSE, I.V.
     Route: 042
     Dates: start: 20000605, end: 20000605
  2. ERYTHROPOIETIN (EPOIETIN ALPHA) [Concomitant]
  3. METOPROLOL [Concomitant]
  4. FUROSEMIDE [Concomitant]
  5. IMMUNOSUPPRESSIVE THERAPIES [Concomitant]
  6. IRON SUPPLEMENTATION [Concomitant]

REACTIONS (3)
  - BLISTER [None]
  - DISEASE PROGRESSION [None]
  - NEPHROGENIC SYSTEMIC FIBROSIS [None]
